FAERS Safety Report 21737620 (Version 1)
Quarter: 2022Q4

REPORT INFORMATION
  Report Type: Spontaneous
  Country: FR (occurrence: FR)
  Receive Date: 20221216
  Receipt Date: 20221216
  Transmission Date: 20230112
  Serious: Yes (Hospitalization)
  Sender: FDA-Public Use
  Company Number: None

PATIENT
  Age: 5 Year
  Sex: Male
  Weight: 18 kg

DRUGS (15)
  1. METHOTREXATE (METHOTREXATE SODIUM) [Suspect]
     Active Substance: METHOTREXATE SODIUM
     Indication: Burkitt^s lymphoma stage III
     Dosage: UNIT DOSE :2300MG,FREQUENCY TIME :1 DAYS, DURATION :1 DAYS
     Dates: start: 20220224, end: 20220224
  2. METHOTREXATE [Suspect]
     Active Substance: METHOTREXATE
     Indication: Product used for unknown indication
     Dosage: UNIT DOSE :30MG,FREQUENCY TIME :1CYCLICAL,DURATION :4 DAYS
     Dates: start: 20220225, end: 20220301
  3. CYCLOPHOSPHAMIDE [Suspect]
     Active Substance: CYCLOPHOSPHAMIDE
     Indication: Burkitt^s lymphoma stage III
     Dosage: UNIT DOSE :300MG,FREQUENCY TIME :1 DAYS, DURATION :2 DAYS
     Dates: start: 20220225, end: 20220227
  4. RITUXIMAB [Suspect]
     Active Substance: RITUXIMAB
     Indication: Burkitt^s lymphoma stage III
     Dosage: UNIT DOSE :300MG,FREQUENCY TIME :1 DAYS, DURATION :1 DAYS
     Dates: start: 20220224, end: 20220224
  5. RITUXIMAB [Suspect]
     Active Substance: RITUXIMAB
     Dosage: UNIT DOSE :300MG,FREQUENCY TIME :1 DAYS, DURATION :1 DAYS
     Dates: start: 20220222, end: 20220222
  6. VINCRISTINE [Suspect]
     Active Substance: VINCRISTINE
     Indication: Burkitt^s lymphoma stage III
     Dosage: UNIT DOSE :1.5MG,FREQUENCY TIME :1 DAYS, DURATION :1 DAYS
     Dates: start: 20220224, end: 20220224
  7. DOXORUBICIN [Suspect]
     Active Substance: DOXORUBICIN
     Indication: Burkitt^s lymphoma stage III
     Dosage: UNIT DOSE :46MG,FREQUENCY TIME :1 DAYS, DURATION :1 DAYS
     Dates: start: 20220225, end: 20220225
  8. AMLODIPINE BESYLATE [Concomitant]
     Active Substance: AMLODIPINE BESYLATE
     Indication: Product used for unknown indication
  9. HYDROCORTISONE [Concomitant]
     Active Substance: HYDROCORTISONE
     Indication: Product used for unknown indication
  10. POLARAMINE [Concomitant]
     Active Substance: DEXCHLORPHENIRAMINE MALEATE
     Indication: Product used for unknown indication
  11. ACETAMINOPHEN [Concomitant]
     Active Substance: ACETAMINOPHEN
     Indication: Product used for unknown indication
  12. MIDAZOLAM VIATRIS [Concomitant]
     Indication: Product used for unknown indication
  13. METHYLPREDNISOLONE [Concomitant]
     Active Substance: METHYLPREDNISOLONE
     Indication: Product used for unknown indication
  14. ONDANSETRON HYDROCHLORIDE [Concomitant]
     Active Substance: ONDANSETRON HYDROCHLORIDE
     Indication: Product used for unknown indication
  15. LEUCOVORIN CALCIUM [Concomitant]
     Active Substance: LEUCOVORIN CALCIUM
     Indication: Product used for unknown indication

REACTIONS (4)
  - Mucosal inflammation [Recovered/Resolved]
  - Febrile bone marrow aplasia [Recovered/Resolved]
  - Colitis [Recovered/Resolved]
  - Pruritus [Not Recovered/Not Resolved]

NARRATIVE: CASE EVENT DATE: 20220302
